FAERS Safety Report 10641139 (Version 12)
Quarter: 2015Q2

REPORT INFORMATION
  Report Type: Report from Study
  Country: US (occurrence: US)
  Receive Date: 20141209
  Receipt Date: 20150511
  Transmission Date: 20150821
  Serious: Yes (Other)
  Sender: FDA-Public Use
  Company Number: US-SA-2014SA133235

PATIENT
  Age: 45 Year
  Sex: Female

DRUGS (6)
  1. AUBAGIO [Suspect]
     Active Substance: TERIFLUNOMIDE
     Indication: MULTIPLE SCLEROSIS
     Dosage: DOSE- 7MG + 14MG
     Route: 048
     Dates: end: 20150209
  2. AUBAGIO [Suspect]
     Active Substance: TERIFLUNOMIDE
     Indication: MULTIPLE SCLEROSIS
     Dosage: DOSE- 7MG + 14MG
     Route: 048
     Dates: end: 201503
  3. AUBAGIO [Suspect]
     Active Substance: TERIFLUNOMIDE
     Indication: MULTIPLE SCLEROSIS
     Route: 048
     Dates: start: 20140802
  4. AUBAGIO [Suspect]
     Active Substance: TERIFLUNOMIDE
     Indication: MULTIPLE SCLEROSIS
     Route: 048
  5. AUBAGIO [Suspect]
     Active Substance: TERIFLUNOMIDE
     Indication: MULTIPLE SCLEROSIS
     Dosage: DOSE :7MG/14 MG
     Route: 048
     Dates: start: 2015
  6. AUBAGIO [Suspect]
     Active Substance: TERIFLUNOMIDE
     Indication: MULTIPLE SCLEROSIS
     Route: 048
     Dates: end: 20150123

REACTIONS (10)
  - Eye disorder [Unknown]
  - Peripheral swelling [Unknown]
  - Migraine [Unknown]
  - Visual impairment [Unknown]
  - Fatigue [Unknown]
  - Gait disturbance [Unknown]
  - Insomnia [Unknown]
  - Stress [Unknown]
  - Musculoskeletal stiffness [Unknown]
  - Laryngitis [Unknown]

NARRATIVE: CASE EVENT DATE: 20150127
